FAERS Safety Report 6345820-1 (Version None)
Quarter: 2009Q3

REPORT INFORMATION
  Report Type: 
  Country: None (occurrence: None)
  Receive Date: 20090909
  Receipt Date: 20090901
  Transmission Date: 20100115
  Serious: Yes (Hospitalization)
  Sender: FDA-Public Use
  Company Number: A0750158A

PATIENT
  Age: 87 Year
  Sex: Female
  Weight: 72.7 kg

DRUGS (9)
  1. AVANDIA [Suspect]
     Indication: DIABETES MELLITUS
     Route: 048
     Dates: start: 20001212, end: 20070601
  2. GLUCOTROL [Concomitant]
  3. DIGOXIN [Concomitant]
  4. THEOPHYLLINE [Concomitant]
  5. SYNTHROID [Concomitant]
  6. RANITIDINE [Concomitant]
  7. SULINDAC [Concomitant]
  8. OMEPRAZOLE [Concomitant]
  9. GEMFIBROZIL [Concomitant]

REACTIONS (2)
  - CARDIAC FAILURE CONGESTIVE [None]
  - MYOCARDIAL INFARCTION [None]
